FAERS Safety Report 8767197 (Version 1)
Quarter: 2012Q4

REPORT INFORMATION
  Report Type: 
  Country: US (occurrence: US)
  Receive Date: 20120904
  Receipt Date: 20120904
  Transmission Date: 20130627
  Serious: No
  Sender: FDA-Public Use
  Company Number: US-BAYER-2012-090937

PATIENT
  Age: 82 Year
  Sex: Male
  Weight: 79.37 kg

DRUGS (7)
  1. ALEVE CAPLET/TABLET,MIDOL EXTENDED RELIEF CAPLET [Suspect]
     Indication: BACK PAIN
     Dosage: 2 DF, QD
     Route: 048
     Dates: start: 201207, end: 20120827
  2. HYDROCO ACETAM [Concomitant]
  3. TAMSULOSIN [Concomitant]
  4. CLINDAMYCIN [Concomitant]
  5. MULTIVITAMIN [Concomitant]
  6. VITAMIN D3 [Concomitant]
  7. VITAMIN B12 [Concomitant]

REACTIONS (2)
  - Nightmare [Recovered/Resolved]
  - Abnormal dreams [Recovered/Resolved]
